FAERS Safety Report 9009931 (Version 1)
Quarter: 2013Q1

REPORT INFORMATION
  Report Type: Spontaneous
  Country: US (occurrence: US)
  Receive Date: 20130111
  Receipt Date: 20130111
  Transmission Date: 20140127
  Serious: Yes (Other)
  Sender: FDA-Public Use
  Company Number: CHPA2013US000629

PATIENT
  Age: 83 Year
  Sex: Female

DRUGS (1)
  1. MAALOX ANTACID LIQUID - UNKNOWN [Suspect]
     Indication: ULCER HAEMORRHAGE
     Dosage: ABOUT ONE OUNCE TWICE PER DAY AS NEEDED
     Route: 048

REACTIONS (6)
  - Breast cancer [Recovered/Resolved]
  - Ulcer [Unknown]
  - Condition aggravated [Unknown]
  - Therapeutic response unexpected [Unknown]
  - Off label use [Unknown]
  - Incorrect dose administered [Unknown]
